FAERS Safety Report 8114734-9 (Version None)
Quarter: 2012Q1

REPORT INFORMATION
  Report Type: 
  Country: None (occurrence: None)
  Receive Date: 20120202
  Receipt Date: 20120202
  Transmission Date: 20120608
  Serious: Yes (Other)
  Sender: FDA-Public Use
  Company Number: None

PATIENT
  Age: 69 Year
  Sex: Female
  Weight: 54.8852 kg

DRUGS (1)
  1. K-Y INTRIGUE [Suspect]
     Indication: INADEQUATE LUBRICATION
     Dosage: SMALL DIME SIZE 2-3/WK TOPICAL
     Route: 061

REACTIONS (3)
  - MUSCLE SPASMS [None]
  - ABDOMINAL DISTENSION [None]
  - POSTMENOPAUSAL HAEMORRHAGE [None]
